FAERS Safety Report 9774998 (Version 4)
Quarter: 2014Q2

REPORT INFORMATION
  Report Type: Spontaneous
  Country: US (occurrence: US)
  Receive Date: 20131220
  Receipt Date: 20140605
  Transmission Date: 20141212
  Serious: Yes (Hospitalization)
  Sender: FDA-Public Use
  Company Number: US-BAYER-2013-153798

PATIENT
  Age: 20 Year
  Sex: Female
  Weight: 54.42 kg

DRUGS (5)
  1. MIRENA [Suspect]
     Indication: CONTRACEPTION
     Dosage: 20 MCG/24HR, CONT
     Route: 015
     Dates: start: 20091230, end: 20100518
  2. CIPRO [Concomitant]
     Indication: URINARY TRACT INFECTION
  3. YAZ [Concomitant]
  4. IBUPROFEN [Concomitant]
  5. BENADRYL [Concomitant]

REACTIONS (5)
  - Uterine perforation [None]
  - Injury [None]
  - Medical device discomfort [None]
  - Medical device pain [None]
  - Depression [None]
